FAERS Safety Report 8991103 (Version 2)
Quarter: 2013Q1

REPORT INFORMATION
  Report Type: Spontaneous
  Country: BE (occurrence: BE)
  Receive Date: 20121231
  Receipt Date: 20130123
  Transmission Date: 20140127
  Serious: Yes (Other)
  Sender: FDA-Public Use
  Company Number: BE-AMGEN-BELSP2012076805

PATIENT
  Age: 81 Year
  Sex: Female
  Weight: 92.6 kg

DRUGS (3)
  1. PROLIA [Suspect]
     Indication: OSTEOPOROSIS
     Dosage: 60 MG, Q6MO
     Route: 058
     Dates: start: 20121002
  2. VITAMIN D /00107901/ [Concomitant]
  3. CALCIUM [Concomitant]

REACTIONS (2)
  - Blood calcium decreased [Recovered/Resolved]
  - Blood parathyroid hormone increased [Recovered/Resolved]
